FAERS Safety Report 5777024-5 (Version None)
Quarter: 2008Q2

REPORT INFORMATION
  Report Type: 
  Country: None (occurrence: None)
  Receive Date: 20080618
  Receipt Date: 20080610
  Transmission Date: 20081010
  Serious: Yes (Other)
  Sender: FDA-Public Use
  Company Number: US-JNJFOC-20080300991

PATIENT
  Sex: Male
  Weight: 99.79 kg

DRUGS (1)
  1. MOTRIN [Suspect]
     Indication: PROCEDURAL PAIN
     Route: 048

REACTIONS (1)
  - PAIN [None]
